FAERS Safety Report 22060145 (Version 1)
Quarter: 2023Q1

REPORT INFORMATION
  Report Type: Spontaneous
  Country: US (occurrence: None)
  Receive Date: 20230302
  Receipt Date: 20230302
  Transmission Date: 20230417
  Serious: No
  Sender: FDA-Public Use
  Company Number: None

PATIENT
  Age: 37 Year
  Sex: Male
  Weight: 48.08 kg

DRUGS (1)
  1. BUPRENORPHINE\NALOXONE [Suspect]
     Active Substance: BUPRENORPHINE\NALOXONE
     Indication: Psoriatic arthropathy
     Dosage: OTHER QUANTITY : 8-2 MG;?FREQUENCY : TWICE A DAY;?
     Route: 060
     Dates: start: 20220114, end: 20230228

REACTIONS (1)
  - Dysgeusia [None]
